FAERS Safety Report 7064079-3 (Version None)
Quarter: 2010Q4

REPORT INFORMATION
  Report Type: 
  Country: None (occurrence: None)
  Receive Date: 20101027
  Receipt Date: 20101021
  Transmission Date: 20110411
  Serious: Yes (Hospitalization)
  Sender: FDA-Public Use
  Company Number: US-SHIRE-SPV1-2010-01835

PATIENT
  Age: 10 Month
  Sex: Male

DRUGS (1)
  1. VYVANSE [Suspect]
     Indication: ACCIDENTAL DRUG INTAKE BY CHILD
     Dosage: 30 MG, ONE DOSE

REACTIONS (4)
  - ACCIDENTAL DRUG INTAKE BY CHILD [None]
  - AGITATION [None]
  - HEART RATE INCREASED [None]
  - MYDRIASIS [None]
